FAERS Safety Report 8123203-1 (Version None)
Quarter: 2012Q1

REPORT INFORMATION
  Report Type: 
  Country: None (occurrence: None)
  Receive Date: 20120208
  Receipt Date: 20120131
  Transmission Date: 20120608
  Serious: Yes (Other)
  Sender: FDA-Public Use
  Company Number: PHEH2011US00738

PATIENT
  Sex: Female

DRUGS (15)
  1. TEKTURNA [Suspect]
  2. HYDROCHLOROTHIAZIDE [Suspect]
  3. COREG [Suspect]
  4. DIOVAN HCT [Suspect]
  5. CARDIZEM [Suspect]
  6. CLONIDINE [Suspect]
  7. BYSTOLIC [Suspect]
  8. ALDACTONE [Suspect]
  9. VALTURNA [Suspect]
  10. ANTIHYPERTENSIVES [Suspect]
     Dosage: UNK UKN, UNK
  11. NORVASC [Suspect]
  12. DIOVAN [Suspect]
  13. AVAPRO [Suspect]
  14. LISINOPRIL [Suspect]
  15. ATENOLOL [Suspect]

REACTIONS (9)
  - DRUG HYPERSENSITIVITY [None]
  - PALPITATIONS [None]
  - RASH [None]
  - CHEST DISCOMFORT [None]
  - WHEEZING [None]
  - URTICARIA [None]
  - ASTHMA [None]
  - BLOOD PRESSURE INCREASED [None]
  - THROAT TIGHTNESS [None]
